FAERS Safety Report 5012606-X (Version None)
Quarter: 2006Q2

REPORT INFORMATION
  Report Type: 
  Country: None (occurrence: None)
  Receive Date: 20060410
  Receipt Date: 20060208
  Transmission Date: 20061013
  Serious: No
  Sender: FDA-Public Use
  Company Number: ENTC2006-0012

PATIENT
  Age: 85 Year
  Sex: Male

DRUGS (1)
  1. STALEVO 150 [Suspect]
     Indication: PARKINSON'S DISEASE
     Dosage: 600 MG, 4 IN 1 D, ORAL
     Route: 048
     Dates: start: 20051101

REACTIONS (3)
  - DRUG INEFFECTIVE [None]
  - FALL [None]
  - PHARMACEUTICAL PRODUCT COMPLAINT [None]
